FAERS Safety Report 6030248-4 (Version None)
Quarter: 2009Q1

REPORT INFORMATION
  Report Type: 
  Country: None (occurrence: None)
  Receive Date: 20090105
  Receipt Date: 20090105
  Transmission Date: 20090719
  Serious: Yes (Hospitalization)
  Sender: FDA-Public Use
  Company Number: None

PATIENT
  Age: 6 Year
  Sex: Male
  Weight: 38 kg

DRUGS (2)
  1. PROAIR HFA [Suspect]
     Indication: ASTHMA
     Dosage: 2 PUFFS 4 TIMES PER DAY INHAL
     Route: 055
     Dates: start: 20080101, end: 20080101
  2. PROAIR HFA [Suspect]
     Indication: WHEEZING
     Dosage: 2 PUFFS 4 TIMES PER DAY INHAL
     Route: 055
     Dates: start: 20080101, end: 20080101

REACTIONS (3)
  - CHEST PAIN [None]
  - DRUG INEFFECTIVE [None]
  - PALPITATIONS [None]
